FAERS Safety Report 23418082 (Version 1)
Quarter: 2024Q1

REPORT INFORMATION
  Report Type: Spontaneous
  Country: US (occurrence: None)
  Receive Date: 20240118
  Receipt Date: 20240118
  Transmission Date: 20240410
  Serious: Yes (Life-Threatening, Hospitalization, Disabling)
  Sender: FDA-Public Use
  Company Number: None

PATIENT
  Age: 49 Year
  Sex: 0

DRUGS (12)
  1. CARBATROL [Suspect]
     Active Substance: CARBAMAZEPINE
     Indication: Seizure
     Dosage: OTHER QUANTITY : 2 CAPSULE(S);?FREQUENCY : TWICE A DAY;?
     Route: 048
  2. PHENOBARBITAL [Suspect]
     Active Substance: PHENOBARBITAL
  3. TEGRETOL [Suspect]
     Active Substance: CARBAMAZEPINE
  4. FELBATOL [Suspect]
     Active Substance: FELBAMATE
  5. NEURONTIN [Suspect]
     Active Substance: GABAPENTIN
  6. BRIVIACT [Suspect]
     Active Substance: BRIVARACETAM
  7. XCOPRI [Suspect]
     Active Substance: CENOBAMATE
  8. Women^s multi vitamin [Concomitant]
  9. Flonaise [Concomitant]
  10. ZYRTEC [Concomitant]
     Active Substance: CETIRIZINE HYDROCHLORIDE
  11. CALCIUM [Concomitant]
     Active Substance: CALCIUM
  12. VITAMIN D3 [Concomitant]
     Active Substance: CHOLECALCIFEROL

REACTIONS (3)
  - Osteoporosis [None]
  - Stevens-Johnson syndrome [None]
  - Ankle fracture [None]

NARRATIVE: CASE EVENT DATE: 20230915
